FAERS Safety Report 4437657-5 (Version None)
Quarter: 2004Q3

REPORT INFORMATION
  Report Type: 
  Country: None (occurrence: None)
  Receive Date: 20040827
  Receipt Date: 20040818
  Transmission Date: 20050211
  Serious: Yes (Death)
  Sender: FDA-Public Use
  Company Number: 04P-167-0263073-00

PATIENT
  Age: 89 Year
  Sex: Male
  Weight: 65 kg

DRUGS (7)
  1. BIAXIN [Suspect]
     Indication: PNEUMONIA
     Dosage: 500 MG, 2 IN 1 D, INTRAVENOUS
     Route: 042
  2. ASPIRIN [Concomitant]
  3. FUROSEMIDE [Concomitant]
  4. SENNA FRUIT [Concomitant]
  5. TEMAZEPAM [Concomitant]
  6. QUETIAPINE [Concomitant]
  7. AMOXICILLIN [Concomitant]

REACTIONS (3)
  - MEDICATION ERROR [None]
  - OEDEMA PERIPHERAL [None]
  - SKIN DISCOLOURATION [None]
